FAERS Safety Report 5541507-3 (Version None)
Quarter: 2007Q4

REPORT INFORMATION
  Report Type: 
  Country: None (occurrence: None)
  Receive Date: 20071210
  Receipt Date: 20071129
  Transmission Date: 20080405
  Serious: Yes (Death, Other)
  Sender: FDA-Public Use
  Company Number: JP-BRISTOL-MYERS SQUIBB COMPANY-13944327

PATIENT
  Age: 28 Year
  Sex: Female

DRUGS (11)
  1. VEPESID [Suspect]
     Indication: ACUTE LYMPHOCYTIC LEUKAEMIA
     Route: 041
     Dates: start: 20060417, end: 20060419
  2. CYCLOPHOSPHAMIDE [Suspect]
     Indication: ACUTE LYMPHOCYTIC LEUKAEMIA
     Dosage: 1650 MG ON 07-MAR-2006 AND FROM 25-AUG-05 -60MG/KG,2.2GM EVERY DAY,THERAPY DATES UNKNOWN.2.2GM
     Route: 041
     Dates: start: 20060823
  3. CYCLOPHOSPHAMIDE [Suspect]
     Indication: BONE MARROW CONDITIONING REGIMEN
     Dosage: 1650 MG ON 07-MAR-2006 AND FROM 25-AUG-05 -60MG/KG,2.2GM EVERY DAY,THERAPY DATES UNKNOWN.2.2GM
     Route: 041
     Dates: start: 20060823
  4. METHOTREXATE [Suspect]
     Indication: ACUTE LYMPHOCYTIC LEUKAEMIA
     Route: 042
  5. ONCOVIN [Suspect]
     Indication: ACUTE LYMPHOCYTIC LEUKAEMIA
     Dosage: THERAPY DATES: 06MAR2006,13MAR2006,27MAR2006,29MAR2006 AND 05APR2006)DOSE 1.8 MG/M2.
     Route: 041
  6. CYLOCIDE [Suspect]
     Indication: ACUTE LYMPHOCYTIC LEUKAEMIA
     Dosage: 2.7GX2/DAY FROM 17/APR/2006-20/APR/2006,100 MG FROM 10JUL-21JUL2006,95 MG/M2 THERPAY DATES UNKNOWN.
     Route: 041
  7. LEUNASE [Suspect]
     Indication: ACUTE LYMPHOCYTIC LEUKAEMIA
     Dosage: 18000 U/M2 THERAPY DATES UNKNOWN.
     Route: 041
     Dates: start: 20060330, end: 20060403
  8. ADRIAMYCIN PFS [Suspect]
     Indication: ACUTE LYMPHOCYTIC LEUKAEMIA
     Route: 042
  9. MERCAPTOPURINE [Suspect]
     Indication: ACUTE LYMPHOCYTIC LEUKAEMIA
     Route: 048
  10. DAUNORUBICIN HCL [Suspect]
     Indication: ACUTE LYMPHOCYTIC LEUKAEMIA
     Dosage: 82 MG,IVDRIP FROM 07-MAR-2006 TO 09-MAR2006.
     Route: 041
  11. RADIATION THERAPY [Suspect]
     Indication: BONE MARROW CONDITIONING REGIMEN
     Dosage: 3 CGY  *4

REACTIONS (2)
  - ACUTE MYELOID LEUKAEMIA [None]
  - PNEUMONIA [None]
